FAERS Safety Report 6053937-4 (Version None)
Quarter: 2009Q1

REPORT INFORMATION
  Report Type: 
  Country: None (occurrence: None)
  Receive Date: 20090127
  Receipt Date: 20090116
  Transmission Date: 20090719
  Serious: Yes (Hospitalization)
  Sender: FDA-Public Use
  Company Number: AU-EISAI MEDIAL RESEARCH-E3810-02486-SPO-AU

PATIENT
  Sex: Female

DRUGS (1)
  1. RABEPRAZOLE SODIUM [Suspect]
     Dosage: UNKNOWN
     Route: 048

REACTIONS (3)
  - LIGAMENT RUPTURE [None]
  - NEPHROLITHIASIS [None]
  - TENDON PAIN [None]
